FAERS Safety Report 7056716-4 (Version None)
Quarter: 2010Q4

REPORT INFORMATION
  Report Type: 
  Country: None (occurrence: None)
  Receive Date: 20101021
  Receipt Date: 20101013
  Transmission Date: 20110411
  Serious: Yes (Other)
  Sender: FDA-Public Use
  Company Number: RU-ABBOTT-10P-251-0678151-00

PATIENT
  Age: 3 Year
  Sex: Male

DRUGS (1)
  1. DEPAKENE [Suspect]
     Indication: CONVULSION
     Route: 048
     Dates: start: 20100921

REACTIONS (6)
  - ERYTHEMA [None]
  - EYELID DISORDER [None]
  - HYPERSENSITIVITY [None]
  - RASH PAPULAR [None]
  - SCRATCH [None]
  - SKIN EXFOLIATION [None]
